FAERS Safety Report 16856077 (Version 5)
Quarter: 2022Q4

REPORT INFORMATION
  Report Type: Spontaneous
  Country: US (occurrence: US)
  Receive Date: 20190926
  Receipt Date: 20221229
  Transmission Date: 20230113
  Serious: Yes (Life-Threatening, Other)
  Sender: FDA-Public Use
  Company Number: US-GILEAD-2019-0429414

PATIENT
  Age: 55 Year
  Sex: Female

DRUGS (5)
  1. TRUVADA [Suspect]
     Active Substance: EMTRICITABINE\TENOFOVIR DISOPROXIL FUMARATE
     Indication: HIV infection
     Dosage: UNK
     Route: 048
     Dates: start: 2006
  2. TRUVADA [Suspect]
     Active Substance: EMTRICITABINE\TENOFOVIR DISOPROXIL FUMARATE
     Indication: Prophylaxis against HIV infection
  3. ATRIPLA [Suspect]
     Active Substance: EFAVIRENZ\EMTRICITABINE\TENOFOVIR DISOPROXIL FUMARATE
     Indication: HIV infection
     Dosage: UNK
     Route: 048
     Dates: start: 2006
  4. ATRIPLA [Suspect]
     Active Substance: EFAVIRENZ\EMTRICITABINE\TENOFOVIR DISOPROXIL FUMARATE
     Dosage: UNK
     Route: 048
     Dates: start: 2010, end: 2019
  5. ATRIPLA [Suspect]
     Active Substance: EFAVIRENZ\EMTRICITABINE\TENOFOVIR DISOPROXIL FUMARATE
     Dosage: UNK
     Route: 048
     Dates: start: 2008

REACTIONS (32)
  - Renal failure [Unknown]
  - Osteoporosis [Unknown]
  - Hip fracture [Unknown]
  - Gastrointestinal perforation [Unknown]
  - Lactic acidosis [Unknown]
  - Pain [Not Recovered/Not Resolved]
  - Emotional distress [Not Recovered/Not Resolved]
  - Loss of personal independence in daily activities [Not Recovered/Not Resolved]
  - Walking aid user [Not Recovered/Not Resolved]
  - Economic problem [Not Recovered/Not Resolved]
  - Anxiety [Not Recovered/Not Resolved]
  - Anhedonia [Not Recovered/Not Resolved]
  - Abdominal pain upper [Unknown]
  - Swelling [Unknown]
  - Decreased appetite [Unknown]
  - Chromaturia [Unknown]
  - Yellow skin [Unknown]
  - Ocular icterus [Unknown]
  - Alopecia [Unknown]
  - Weight increased [Unknown]
  - Mental disorder [Unknown]
  - Liver disorder [Unknown]
  - Abdominal distension [Unknown]
  - Oropharyngeal pain [Unknown]
  - Eye irritation [Unknown]
  - Pain of skin [Unknown]
  - Erythema [Unknown]
  - Skin discolouration [Unknown]
  - Blister [Unknown]
  - Skin exfoliation [Unknown]
  - Rash [Unknown]
  - Hypersensitivity [Unknown]
